FAERS Safety Report 8931484 (Version 1)
Quarter: 2012Q4

REPORT INFORMATION
  Report Type: 
  Country: AT (occurrence: AT)
  Receive Date: 20121128
  Receipt Date: 20121128
  Transmission Date: 20130627
  Serious: Yes (Hospitalization)
  Sender: FDA-Public Use
  Company Number: AT-ROCHE-1161088

PATIENT
  Age: 60 Year
  Sex: Male
  Weight: 100 kg

DRUGS (2)
  1. XELODA [Suspect]
     Indication: OESOPHAGEAL CARCINOMA
     Route: 065
  2. HERCEPTIN [Suspect]
     Indication: OESOPHAGEAL CARCINOMA
     Route: 065

REACTIONS (1)
  - Myocardial infarction [Recovering/Resolving]
